FAERS Safety Report 4450707-5 (Version None)
Quarter: 2004Q3

REPORT INFORMATION
  Report Type: 
  Country: None (occurrence: None)
  Receive Date: 20040914
  Receipt Date: 20040914
  Transmission Date: 20050211
  Serious: No
  Sender: FDA-Public Use
  Company Number: None

PATIENT
  Sex: Male
  Weight: 100 kg

DRUGS (1)
  1. ENOXAPARIN SODIUM [Suspect]
     Indication: ATRIAL FIBRILLATION
     Dosage: 100 MG BID SUBCUTANEOUS
     Route: 058

REACTIONS (2)
  - CATHETER SITE HAEMORRHAGE [None]
  - RETROPERITONEAL HAEMORRHAGE [None]
